FAERS Safety Report 21176256 (Version 2)
Quarter: 2022Q3

REPORT INFORMATION
  Report Type: Spontaneous
  Country: IT (occurrence: IT)
  Receive Date: 20220805
  Receipt Date: 20220823
  Transmission Date: 20221027
  Serious: Yes (Hospitalization, Other)
  Sender: FDA-Public Use
  Company Number: None

PATIENT
  Age: 58 Year
  Sex: Female
  Weight: 59 kg

DRUGS (4)
  1. GEMCITABINE [Suspect]
     Active Substance: GEMCITABINE
     Indication: Transitional cell carcinoma
     Dates: start: 20220607
  2. CISPLATIN [Interacting]
     Active Substance: CISPLATIN
     Indication: Transitional cell carcinoma
     Dosage: 08.06.22 CISPLATIN 90MG (77.92% DOSE)
     Dates: start: 20220608
  3. XANAX [Concomitant]
     Active Substance: ALPRAZOLAM
     Indication: Product used for unknown indication
     Dosage: 3.5 DOSAGE FORMS DAILY; XANAX 0.50 MG X 3.5 CPS / DAY, NOT KNOWN LOT NUMBER, STARTING DATE OF INTAKE
  4. LEVOTHYROXINE SODIUM [Concomitant]
     Active Substance: LEVOTHYROXINE SODIUM
     Indication: Product used for unknown indication
     Dosage: 125 MICROGRAM DAILY; NOT KNOWN LOT NUMBER, STARTING DATE OF INTAKE AND END OF INTAKE, NO THERAPEUTIC

REACTIONS (2)
  - Thrombocytopenia [Recovering/Resolving]
  - Drug interaction [Unknown]

NARRATIVE: CASE EVENT DATE: 20220620
